FAERS Safety Report 16450841 (Version 1)
Quarter: 2019Q2

REPORT INFORMATION
  Report Type: Spontaneous
  Country: US (occurrence: US)
  Receive Date: 20190619
  Receipt Date: 20190619
  Transmission Date: 20190711
  Serious: Yes (Hospitalization)
  Sender: FDA-Public Use
  Company Number: US-BELCHER PHARMACEUTICALS, LLC-2019VTS00031

PATIENT
  Age: 64 Year
  Sex: Female
  Weight: 86.17 kg

DRUGS (4)
  1. LOVASTATIN. [Concomitant]
     Active Substance: LOVASTATIN
  2. HYOSCYAMINE SULFATE SL [Suspect]
     Active Substance: HYOSCYAMINE SULFATE
     Indication: IRRITABLE BOWEL SYNDROME
     Dosage: 0.125 MG
     Route: 060
     Dates: start: 1999, end: 201906
  3. OLMESARTAN [Concomitant]
     Active Substance: OLMESARTAN
  4. FLUTICASONE. [Concomitant]
     Active Substance: FLUTICASONE

REACTIONS (8)
  - Dysarthria [Recovered/Resolved]
  - Balance disorder [Recovered/Resolved]
  - Vision blurred [Recovered/Resolved]
  - Asthenia [Not Recovered/Not Resolved]
  - Throat irritation [Unknown]
  - Dizziness [Not Recovered/Not Resolved]
  - Anticholinergic syndrome [Recovering/Resolving]
  - Recalled product administered [Recovered/Resolved]

NARRATIVE: CASE EVENT DATE: 20190603
